FAERS Safety Report 6215451-2 (Version None)
Quarter: 2009Q2

REPORT INFORMATION
  Report Type: 
  Country: None (occurrence: None)
  Receive Date: 20090603
  Receipt Date: 20090527
  Transmission Date: 20091009
  Serious: Yes (Other)
  Sender: FDA-Public Use
  Company Number: ALL1-2009-01480

PATIENT
  Age: 72 Year
  Sex: Male
  Weight: 81.6 kg

DRUGS (5)
  1. VYVANSE [Suspect]
     Indication: ATTENTION DEFICIT/HYPERACTIVITY DISORDER
     Dosage: 70 MG, 1X/DAY:QD, ORAL
     Route: 048
     Dates: start: 20080901
  2. VASOTEC [Concomitant]
  3. NEXIUM [Concomitant]
  4. ZOCOR [Concomitant]
  5. ZOLOFT [Concomitant]

REACTIONS (4)
  - BLADDER DISTENSION [None]
  - CYST [None]
  - INCONTINENCE [None]
  - PROSTATOMEGALY [None]
